FAERS Safety Report 9109307 (Version 2)
Quarter: 2013Q1

REPORT INFORMATION
  Report Type: Report from Study
  Country: US (occurrence: US)
  Receive Date: 20130222
  Receipt Date: 20130312
  Transmission Date: 20140127
  Serious: Yes (Death, Hospitalization)
  Sender: FDA-Public Use
  Company Number: US-ACTELION-A-NJ2013-79522

PATIENT
  Age: 38 Year
  Sex: Female

DRUGS (2)
  1. TRACLEER [Suspect]
     Indication: PULMONARY ARTERIAL HYPERTENSION
     Route: 048
  2. SILDENAFIL [Concomitant]

REACTIONS (9)
  - Respiratory failure [Fatal]
  - Tracheostomy [Unknown]
  - Bronchial secretion retention [Unknown]
  - Cardiac failure [Unknown]
  - Amenorrhoea [Unknown]
  - Tremor [Unknown]
  - Ascites [Unknown]
  - Syncope [Unknown]
  - Local swelling [Unknown]
